FAERS Safety Report 5216747-3 (Version None)
Quarter: 2007Q1

REPORT INFORMATION
  Report Type: 
  Country: None (occurrence: None)
  Receive Date: 20070118
  Receipt Date: 20070103
  Transmission Date: 20070707
  Serious: Yes (Disabling)
  Sender: FDA-Public Use
  Company Number: 1-14522513

PATIENT
  Age: 1 Month
  Sex: Male

DRUGS (3)
  1. AMMONAPS (SODIUM PHENYLBUTYRATE) GRANULES [Suspect]
     Indication: HYPERAMMONAEMIA
     Dosage: 1098 MG DAILY ORALLY
     Route: 048
     Dates: start: 20061018
  2. CARBAGLU (CARGLUMIC ACID) TABLETS [Suspect]
     Dosage: 150 MG 6 X DAILY ORALLY
     Route: 048
     Dates: start: 20061007, end: 20061124
  3. SODIUM BENZOATE [Concomitant]

REACTIONS (5)
  - EJECTION FRACTION DECREASED [None]
  - OEDEMA [None]
  - RESTRICTIVE CARDIOMYOPATHY [None]
  - TACHYPNOEA [None]
  - WEIGHT INCREASED [None]
